FAERS Safety Report 26101627 (Version 1)
Quarter: 2025Q4

REPORT INFORMATION
  Report Type: Spontaneous
  Country: JP (occurrence: JP)
  Receive Date: 20251128
  Receipt Date: 20251128
  Transmission Date: 20260118
  Serious: Yes (Death)
  Sender: NOVARTIS
  Company Number: JP-002147023-NVSJ2025JP011471

PATIENT
  Age: 20 Year
  Sex: Female

DRUGS (1)
  1. DABRAFENIB [Suspect]
     Active Substance: DABRAFENIB
     Indication: Brain stem glioma
     Dosage: UNK
     Route: 065

REACTIONS (3)
  - Metastatic neoplasm [Fatal]
  - Malignant neoplasm progression [Fatal]
  - Off label use [Unknown]
